FAERS Safety Report 12207139 (Version 1)
Quarter: 2016Q1

REPORT INFORMATION
  Report Type: Spontaneous
  Country: US (occurrence: US)
  Receive Date: 20160324
  Receipt Date: 20160324
  Transmission Date: 20160526
  Serious: Yes (Other)
  Sender: FDA-Public Use
  Company Number: US-JNJFOC-20160306012

PATIENT
  Sex: Male
  Weight: 99.79 kg

DRUGS (4)
  1. METHOTREXATE [Concomitant]
     Active Substance: METHOTREXATE
     Indication: ARTHRITIS
     Dosage: 8 TABLET/ -/ 2.5 MG/ WEEKLY
     Dates: start: 1998
  2. REMICADE [Suspect]
     Active Substance: INFLIXIMAB
     Indication: PSORIATIC ARTHROPATHY
     Route: 042
     Dates: start: 2004, end: 2005
  3. PREDNISONE. [Concomitant]
     Active Substance: PREDNISONE
     Indication: ARTHRITIS
     Dates: start: 1998, end: 1998
  4. PLAQUENIL [Concomitant]
     Active Substance: HYDROXYCHLOROQUINE SULFATE
     Indication: ARTHRITIS
     Dates: start: 2000, end: 2000

REACTIONS (2)
  - Weight increased [Unknown]
  - Progressive multiple sclerosis [Not Recovered/Not Resolved]

NARRATIVE: CASE EVENT DATE: 2005
